FAERS Safety Report 8105726-4 (Version None)
Quarter: 2012Q1

REPORT INFORMATION
  Report Type: 
  Country: None (occurrence: None)
  Receive Date: 20120201
  Receipt Date: 20120123
  Transmission Date: 20120608
  Serious: Yes (Hospitalization, Other)
  Sender: FDA-Public Use
  Company Number: US-ASTRAZENECA-2011SE77377

PATIENT
  Age: 42 Year
  Sex: Male

DRUGS (3)
  1. TOPROL-XL [Suspect]
     Route: 048
  2. OMEPRAZOLE [Suspect]
     Route: 048
  3. NEXIUM [Concomitant]
     Route: 048

REACTIONS (1)
  - ACCIDENT [None]
